FAERS Safety Report 7769790-4 (Version None)
Quarter: 2011Q3

REPORT INFORMATION
  Report Type: 
  Country: None (occurrence: None)
  Receive Date: 20110922
  Receipt Date: 20110524
  Transmission Date: 20111222
  Serious: Yes (Other)
  Sender: FDA-Public Use
  Company Number: US-ASTRAZENECA-2009UW14923

PATIENT
  Age: 15267 Day
  Sex: Male
  Weight: 83 kg

DRUGS (3)
  1. SEROQUEL [Suspect]
     Indication: INSOMNIA
     Route: 048
     Dates: start: 20000101
  2. GEODON [Concomitant]
     Dates: start: 20020101, end: 20080101
  3. SEROQUEL [Suspect]
     Route: 048
     Dates: end: 20090101

REACTIONS (8)
  - NECROBIOSIS LIPOIDICA DIABETICORUM [None]
  - ORGANIC ERECTILE DYSFUNCTION [None]
  - WEIGHT INCREASED [None]
  - DIABETIC KETOACIDOSIS [None]
  - TARDIVE DYSKINESIA [None]
  - TYPE 2 DIABETES MELLITUS [None]
  - BLOOD TRIGLYCERIDES INCREASED [None]
  - TYPE 1 DIABETES MELLITUS [None]
